FAERS Safety Report 7069752-9 (Version None)
Quarter: 2010Q4

REPORT INFORMATION
  Report Type: 
  Country: None (occurrence: None)
  Receive Date: 20101028
  Receipt Date: 20100601
  Transmission Date: 20110411
  Serious: No
  Sender: FDA-Public Use
  Company Number: US-WYE-H15447210

PATIENT
  Sex: Female

DRUGS (3)
  1. EFFEXOR [Suspect]
     Route: 065
  2. EFFEXOR [Suspect]
     Route: 048
  3. EFFEXOR [Suspect]
     Route: 065

REACTIONS (1)
  - DRUG WITHDRAWAL SYNDROME [None]
